FAERS Safety Report 25394106 (Version 1)
Quarter: 2025Q2

REPORT INFORMATION
  Report Type: Report from Study
  Country: FR (occurrence: None)
  Receive Date: 20250604
  Receipt Date: 20250604
  Transmission Date: 20250717
  Serious: Yes (Death)
  Sender: ENCUBE ETHICALS
  Company Number: FR-Encube-001881

PATIENT
  Age: 72 Year

DRUGS (1)
  1. DAPSONE [Suspect]
     Active Substance: DAPSONE
     Indication: Pemphigus

REACTIONS (3)
  - Anaemia [Fatal]
  - Off label use [Unknown]
  - Cardiac failure [Fatal]
